FAERS Safety Report 13274845 (Version 14)
Quarter: 2020Q3

REPORT INFORMATION
  Report Type: Report from Study
  Country: US (occurrence: US)
  Receive Date: 20170227
  Receipt Date: 20200701
  Transmission Date: 20201102
  Serious: Yes (Death, Life-Threatening, Hospitalization, Congenital Anomaly)
  Sender: FDA-Public Use
  Company Number: US-ACTELION-A-US2016-147269

PATIENT
  Age: 67 Year
  Sex: Female
  Weight: 82.54 kg

DRUGS (28)
  1. ALBUTEROL. [Concomitant]
     Active Substance: ALBUTEROL
     Dosage: UNK
     Dates: start: 20170827
  2. SPIRIVA [Concomitant]
     Active Substance: TIOTROPIUM BROMIDE MONOHYDRATE
     Dosage: UNK
     Dates: start: 20170827
  3. ASA [Concomitant]
     Active Substance: ASPIRIN
     Dosage: 250 UNK, Q6HRS
     Route: 048
  4. PHENERGAN DM [Concomitant]
     Active Substance: DEXTROMETHORPHAN HYDROBROMIDE\PROMETHAZINE HYDROCHLORIDE
  5. SINGULAIR [Concomitant]
     Active Substance: MONTELUKAST SODIUM
     Dosage: 10 MG, QD
     Route: 048
  6. ORENITRAM [Concomitant]
     Active Substance: TREPROSTINIL
  7. XANAX [Concomitant]
     Active Substance: ALPRAZOLAM
     Indication: ANXIETY
     Dosage: 0.5 MG
  8. REMODULIN [Suspect]
     Active Substance: TREPROSTINIL
     Indication: PULMONARY ARTERIAL HYPERTENSION
     Route: 042
  9. AMLODIPINE [Concomitant]
     Active Substance: AMLODIPINE BESYLATE
  10. ADVAIR HFA [Concomitant]
     Active Substance: FLUTICASONE PROPIONATE\SALMETEROL XINAFOATE
     Dosage: UNK
     Dates: start: 20170827
  11. PRAVACHOL [Concomitant]
     Active Substance: PRAVASTATIN SODIUM
     Dosage: 10 MG
  12. NORCO [Concomitant]
     Active Substance: ACETAMINOPHEN\HYDROCODONE BITARTRATE
  13. PROVENTIL HFA [SALBUTAMOL] [Concomitant]
  14. OPSUMIT [Suspect]
     Active Substance: MACITENTAN
     Indication: PULMONARY ARTERIAL HYPERTENSION
     Dosage: 10 MG, QD
     Route: 048
     Dates: start: 20150726
  15. REMODULIN [Suspect]
     Active Substance: TREPROSTINIL
     Dosage: UNK
     Route: 058
  16. ADEMPAS [Concomitant]
     Active Substance: RIOCIGUAT
  17. ADCIRCA [Concomitant]
     Active Substance: TADALAFIL
  18. SPIRONOLACTONE. [Concomitant]
     Active Substance: SPIRONOLACTONE
     Dosage: UNK
     Dates: start: 20170322
  19. VITAMIN B12 [Concomitant]
     Active Substance: CYANOCOBALAMIN
     Dosage: 500 MCG, QD
     Route: 048
  20. LASIX [Concomitant]
     Active Substance: FUROSEMIDE
     Dosage: 40 MG, UNK
  21. APAP [Concomitant]
     Active Substance: ACETAMINOPHEN
     Dosage: 250 UNK, Q6HRS
     Route: 048
  22. KCL [Concomitant]
     Active Substance: POTASSIUM CHLORIDE
     Dosage: 20 MEQ, QD
  23. LOMOTIL [LOPERAMIDE HYDROCHLORIDE] [Concomitant]
     Active Substance: LOPERAMIDE HYDROCHLORIDE
  24. PROVENTIL [Concomitant]
     Active Substance: ALBUTEROL
  25. ZAROXOLYN [Concomitant]
     Active Substance: METOLAZONE
     Dosage: 2.5 MG, QD
     Route: 048
  26. CAFFEINA [Concomitant]
     Active Substance: CAFFEINE
     Dosage: 65 UNK, Q6HRS
     Route: 048
  27. CALCIUM [Concomitant]
     Active Substance: CALCIUM
     Indication: DYSPEPSIA
     Dosage: 500 MG, TID
     Route: 048
  28. PROTONIX [OMEPRAZOLE] [Concomitant]
     Active Substance: OMEPRAZOLE
     Dosage: 40 MG, QD
     Route: 048

REACTIONS (75)
  - Electrocardiogram T wave inversion [Fatal]
  - Chest pain [Fatal]
  - Generalised oedema [Recovered/Resolved]
  - Nausea [Recovered/Resolved]
  - Urine output decreased [Recovered/Resolved]
  - Pruritus [Recovered/Resolved]
  - Pulmonary oedema [Recovered/Resolved]
  - Hypoxia [Recovered/Resolved]
  - Blood creatinine increased [Unknown]
  - Haemoglobin decreased [Unknown]
  - Lymphadenopathy [Recovered/Resolved]
  - Decreased appetite [Unknown]
  - Tachycardia [Fatal]
  - Abdominal distension [Recovered/Resolved]
  - Ascites [Recovered/Resolved]
  - Alanine aminotransferase decreased [Unknown]
  - Platelet count decreased [Unknown]
  - Weight increased [Recovered/Resolved]
  - Gait disturbance [Unknown]
  - Oedema peripheral [Recovered/Resolved]
  - Rash [Unknown]
  - Loss of consciousness [Recovered/Resolved]
  - Peripheral swelling [Recovered/Resolved]
  - Cardiomegaly [Recovered/Resolved]
  - Blood sodium decreased [Unknown]
  - Pain [Unknown]
  - Blood pressure decreased [Unknown]
  - Blood potassium increased [Unknown]
  - Pulmonary arterial hypertension [Fatal]
  - Ventricular failure [Fatal]
  - Bundle branch block right [Fatal]
  - Vomiting [Recovered/Resolved]
  - Syncope [Recovered/Resolved]
  - Acute respiratory failure [Recovered/Resolved]
  - Aspartate aminotransferase decreased [Unknown]
  - Feeling abnormal [Unknown]
  - Epistaxis [Unknown]
  - Electrocardiogram QT prolonged [Fatal]
  - Abdominal pain [Recovered/Resolved]
  - Fluid retention [Recovered/Resolved]
  - Device related infection [Recovered/Resolved]
  - Atelectasis [Recovered/Resolved]
  - Cardiac failure congestive [Recovered/Resolved]
  - Diarrhoea [Unknown]
  - Blood urea increased [Unknown]
  - Fall [Unknown]
  - Fatigue [Unknown]
  - Pain in extremity [Unknown]
  - Application site swelling [Unknown]
  - Dyspnoea [Fatal]
  - Cor pulmonale [Recovered/Resolved]
  - Urinary incontinence [Unknown]
  - Hypotension [Unknown]
  - Tricuspid valve incompetence [Unknown]
  - Application site pruritus [Unknown]
  - Oxygen saturation decreased [Unknown]
  - Headache [Unknown]
  - Skin tightness [Unknown]
  - Atrial enlargement [Fatal]
  - Cardiac failure acute [Recovered/Resolved]
  - Rales [Recovered/Resolved]
  - Fluid overload [Recovered/Resolved]
  - Hypokalaemia [Unknown]
  - Dyspnoea exertional [Unknown]
  - Pericardial effusion [Recovered/Resolved]
  - Application site erythema [Recovering/Resolving]
  - Heart rate increased [Unknown]
  - Dizziness [Unknown]
  - Application site pain [Unknown]
  - Disease progression [Fatal]
  - Blood potassium decreased [Recovered/Resolved]
  - Weight decreased [Unknown]
  - Retching [Unknown]
  - Catheter management [Unknown]
  - Paratracheal lymphadenopathy [Unknown]

NARRATIVE: CASE EVENT DATE: 20151014
